FAERS Safety Report 7465444 (Version 3)
Quarter: 2014Q2

REPORT INFORMATION
  Report Type: Spontaneous
  Country: US (occurrence: US)
  Receive Date: 20100712
  Receipt Date: 20140513
  Transmission Date: 20141212
  Serious: Yes (Other)
  Sender: FDA-Public Use
  Company Number: US-BAYER-201027128NA

PATIENT
  Age: 16 Year
  Sex: Female

DRUGS (3)
  1. YAZ [Suspect]
     Route: 048
     Dates: start: 2006
  2. CELEXA [Concomitant]
     Dosage: 20 MG, UNK
  3. PROTONIX [Concomitant]
     Dosage: 20 MG, UNK

REACTIONS (3)
  - Gallbladder injury [Unknown]
  - Cholecystitis chronic [None]
  - Cholelithiasis [None]
